FAERS Safety Report 18985046 (Version 1)
Quarter: 2021Q1

REPORT INFORMATION
  Report Type: Spontaneous
  Country: US (occurrence: US)
  Receive Date: 20210309
  Receipt Date: 20210309
  Transmission Date: 20210420
  Serious: Yes (Other)
  Sender: FDA-Public Use
  Company Number: US-AMGEN-USASP2021033122

PATIENT
  Age: 34 Year
  Sex: Female

DRUGS (1)
  1. XGEVA [Suspect]
     Active Substance: DENOSUMAB
     Indication: BONE GIANT CELL TUMOUR MALIGNANT
     Dosage: UNK UNK, Q4WK
     Route: 065

REACTIONS (3)
  - Bone giant cell tumour malignant [Unknown]
  - Off label use [Unknown]
  - Metastases to lung [Unknown]
